FAERS Safety Report 9321049 (Version 4)
Quarter: 2014Q1

REPORT INFORMATION
  Report Type: Spontaneous
  Country: CA (occurrence: None)
  Receive Date: 20130528
  Receipt Date: 20140314
  Transmission Date: 20141002
  Serious: Yes (Other)
  Sender: FDA-Public Use
  Company Number: 2012AP001734

PATIENT
  Age: 37 Year
  Sex: Female
  Weight: 53 kg

DRUGS (6)
  1. FERRIPROX [Suspect]
     Indication: IRON OVERLOAD
     Route: 048
     Dates: start: 20120509, end: 20120531
  2. RAMIPRIL [Concomitant]
  3. CARVEDILOL [Concomitant]
  4. CALCIUM [Concomitant]
  5. VITAMIN D /00107901/ [Concomitant]
  6. TRICYCLEN [Concomitant]

REACTIONS (7)
  - Agranulocytosis [None]
  - Alanine aminotransferase increased [None]
  - Accidental overdose [None]
  - Haemoglobin increased [None]
  - Platelet count increased [None]
  - Incorrect dose administered [None]
  - Neutropenia [None]
